FAERS Safety Report 7904914-7 (Version None)
Quarter: 2011Q4

REPORT INFORMATION
  Report Type: 
  Country: None (occurrence: None)
  Receive Date: 20111109
  Receipt Date: 20111103
  Transmission Date: 20120403
  Serious: Yes (Other)
  Sender: FDA-Public Use
  Company Number: US-PFIZER INC-2011270712

PATIENT
  Sex: Female
  Weight: 68.027 kg

DRUGS (21)
  1. CHANTIX [Suspect]
     Indication: SMOKING CESSATION THERAPY
     Dosage: 0.5 MG, DAILY
     Route: 048
     Dates: start: 20100901, end: 20100101
  2. NITROGLYCERIN [Concomitant]
     Dosage: UNK, AS NEEDED
  3. LANTUS [Concomitant]
     Dosage: 70 UNITS
  4. LYRICA [Concomitant]
     Indication: PAIN
     Dosage: UNK
  5. ZOCOR [Suspect]
  6. HUMALOG [Concomitant]
     Dosage: UNK
  7. VITAMIN D [Concomitant]
     Dosage: 25000 IU, WEEKLY
  8. METHADONE HCL [Suspect]
     Indication: NERVE INJURY
  9. SUBOXONE [Suspect]
     Indication: PAIN
     Dosage: UNK
  10. NIASPAN [Concomitant]
     Indication: BLOOD CHOLESTEROL ABNORMAL
     Dosage: UNK
  11. TOPROL-XL [Concomitant]
     Dosage: UNK
  12. PERCOCET [Concomitant]
     Indication: PAIN
     Dosage: UNK
  13. ACETYLSALICYLIC ACID [Concomitant]
     Dosage: 325 MG, DAILY
  14. LIPITOR [Concomitant]
     Indication: BLOOD CHOLESTEROL ABNORMAL
     Dosage: UNK
  15. METHADONE HCL [Suspect]
     Indication: PAIN
     Dosage: UNK
  16. LISINOPRIL [Concomitant]
     Dosage: UNK
  17. TRAZODONE HCL [Suspect]
     Indication: INSOMNIA
  18. SUBOXONE [Suspect]
     Indication: NERVE INJURY
  19. MORPHINE [Concomitant]
     Indication: PAIN
     Dosage: UNK
  20. DILANTIN [Concomitant]
     Dosage: UNK, DAILY
  21. VALIUM [Concomitant]
     Indication: MIGRAINE
     Dosage: UNK

REACTIONS (5)
  - BLINDNESS TRANSIENT [None]
  - GLYCOSYLATED HAEMOGLOBIN INCREASED [None]
  - STUPOR [None]
  - SURGERY [None]
  - BLOOD PRESSURE INCREASED [None]
